FAERS Safety Report 5583865-X (Version None)
Quarter: 2008Q1

REPORT INFORMATION
  Report Type: 
  Country: None (occurrence: None)
  Receive Date: 20080103
  Receipt Date: 20071221
  Transmission Date: 20080703
  Serious: Yes (Hospitalization)
  Sender: FDA-Public Use
  Company Number: 163-21880-07120929

PATIENT
  Age: 79 Year
  Sex: Male
  Weight: 75.7 kg

DRUGS (3)
  1. REVLIMID [Suspect]
     Indication: CHRONIC LYMPHOCYTIC LEUKAEMIA
     Dosage: 2.5 MG, DAILY, ORAL
     Route: 048
     Dates: start: 20071211, end: 20071215
  2. ALLOPURINOL [Concomitant]
  3. ANTIBIOTIC (ANTIBIOTICS) [Concomitant]

REACTIONS (2)
  - BLOOD CREATINE INCREASED [None]
  - TUMOUR LYSIS SYNDROME [None]
